FAERS Safety Report 23178390 (Version 1)
Quarter: 2023Q4

REPORT INFORMATION
  Report Type: Spontaneous
  Country: US (occurrence: None)
  Receive Date: 20231113
  Receipt Date: 20231113
  Transmission Date: 20240110
  Serious: Yes (Other)
  Sender: FDA-Public Use
  Company Number: None

PATIENT
  Age: 73 Year
  Sex: Male

DRUGS (10)
  1. REVLIMID [Suspect]
     Active Substance: LENALIDOMIDE
     Indication: Plasma cell myeloma
     Route: 048
     Dates: start: 202007
  2. VITAMIN D3 SOFTGEL CAPS [Concomitant]
  3. ZINC [Concomitant]
  4. SOTALOL [Concomitant]
  5. SPIRONOLACTONE [Concomitant]
  6. TAMSULOSIN [Concomitant]
  7. VALSARTAN [Concomitant]
  8. ASPIRIN [Concomitant]
  9. PRORENAL VITAL [Concomitant]
  10. VITAMIN B12 [Concomitant]
     Active Substance: CYANOCOBALAMIN

REACTIONS (2)
  - Neutropenia [None]
  - Inappropriate schedule of product administration [None]

NARRATIVE: CASE EVENT DATE: 20231001
